FAERS Safety Report 8861657 (Version 1)
Quarter: 2012Q4

REPORT INFORMATION
  Report Type: 
  Country: US (occurrence: US)
  Receive Date: 20121025
  Receipt Date: 20121025
  Transmission Date: 20130627
  Serious: No
  Sender: FDA-Public Use
  Company Number: US-AMGEN-USASP2012019201

PATIENT
  Sex: Female
  Weight: 83.9 kg

DRUGS (10)
  1. ENBREL [Suspect]
     Indication: PRODUCT USED FOR UNKNOWN INDICATION
     Dosage: 50 mg, qwk
     Route: 058
  2. SAVELLA [Concomitant]
     Dosage: UNK
  3. VALIUM                             /00017001/ [Concomitant]
     Dosage: UNK
  4. SULFASALAZIN [Concomitant]
     Dosage: UNK
  5. GABAPENTIN [Concomitant]
     Dosage: UNK
  6. NORCO [Concomitant]
     Dosage: UNK
  7. BACLOFEN [Concomitant]
     Dosage: UNK
  8. VITAMIN D /00107901/ [Concomitant]
     Dosage: UNK
  9. PREVACID [Concomitant]
     Dosage: UNK
  10. KENALOG [Concomitant]
     Dosage: UNK

REACTIONS (4)
  - Joint stiffness [Unknown]
  - Joint swelling [Unknown]
  - Oedema peripheral [Unknown]
  - Muscle spasms [Unknown]
